FAERS Safety Report 8191178-5 (Version None)
Quarter: 2012Q1

REPORT INFORMATION
  Report Type: 
  Country: None (occurrence: None)
  Receive Date: 20120307
  Receipt Date: 20120301
  Transmission Date: 20120608
  Serious: No
  Sender: FDA-Public Use
  Company Number: US-PFIZER INC-2012055617

PATIENT
  Sex: Female

DRUGS (6)
  1. LIDOCAINE HYDROCHLORIDE [Suspect]
     Dosage: UNK
  2. PHENYLEPHRINE HCL [Suspect]
     Dosage: UNK
  3. ACETYLSALICYLIC ACID SRT [Suspect]
     Dosage: UNK
  4. POTASSIUM PENICILLIN G [Suspect]
     Dosage: UNK
  5. SULFACETAMIDE SODIUM [Suspect]
     Dosage: UNK
  6. METHOTREXATE [Suspect]
     Dosage: UNK

REACTIONS (1)
  - DRUG HYPERSENSITIVITY [None]
